FAERS Safety Report 5450430-4 (Version None)
Quarter: 2007Q3

REPORT INFORMATION
  Report Type: 
  Country: None (occurrence: None)
  Receive Date: 20070803
  Receipt Date: 20070507
  Transmission Date: 20080115
  Serious: Yes (Other)
  Sender: FDA-Public Use
  Company Number: 36910

PATIENT
  Sex: Female
  Weight: 61 kg

DRUGS (4)
  1. PROPOFOL [Suspect]
     Dosage: 200MG/IV
     Route: 042
     Dates: start: 20070430
  2. PROPOFOL [Suspect]
  3. PROPOFOL [Suspect]
     Dosage: 200MG/IV
     Route: 042
     Dates: start: 20070430
  4. LIDOCAINE [Concomitant]

REACTIONS (2)
  - HEADACHE [None]
  - PYREXIA [None]
